FAERS Safety Report 4601685-7 (Version None)
Quarter: 2005Q1

REPORT INFORMATION
  Report Type: 
  Country: None (occurrence: None)
  Receive Date: 20050131
  Receipt Date: 20040922
  Transmission Date: 20050727
  Serious: No
  Sender: FDA-Public Use
  Company Number: 200417264US

PATIENT
  Sex: Female

DRUGS (1)
  1. KETEK [Suspect]
     Dosage: PO
     Route: 048
     Dates: start: 20040921

REACTIONS (2)
  - NERVOUSNESS [None]
  - SENSATION OF HEAVINESS [None]
